FAERS Safety Report 10228913 (Version 2)
Quarter: 2014Q3

REPORT INFORMATION
  Report Type: Spontaneous
  Country: US (occurrence: US)
  Receive Date: 20140610
  Receipt Date: 20140924
  Transmission Date: 20150326
  Serious: Yes (Hospitalization, Other)
  Sender: FDA-Public Use
  Company Number: US-ASTRAZENECA-2014SE38907

PATIENT
  Age: 67 Year
  Sex: Female
  Weight: 59 kg

DRUGS (14)
  1. PRILOSEC [Suspect]
     Active Substance: OMEPRAZOLE MAGNESIUM
     Indication: GASTROOESOPHAGEAL REFLUX DISEASE
     Route: 048
  2. PRILOSEC [Suspect]
     Active Substance: OMEPRAZOLE MAGNESIUM
     Indication: GASTROOESOPHAGEAL REFLUX DISEASE
     Dosage: RITE AID AND THEN WALGREEN^S BRAND OMEPRAZOLE 20.6MG DAILY
     Route: 048
  3. MELATONIN WITH VALERIAN ROOT HOPS PASSION FLOWER AND CHAMOMILE [Concomitant]
     Indication: SLEEP DISORDER
     Route: 048
  4. DOXEPIN [Concomitant]
     Active Substance: DOXEPIN
     Indication: INSOMNIA
     Route: 048
     Dates: start: 1991
  5. NEXIUM [Suspect]
     Active Substance: ESOMEPRAZOLE MAGNESIUM
     Indication: GASTROOESOPHAGEAL REFLUX DISEASE
     Route: 048
     Dates: start: 2010, end: 2010
  6. NEXIUM [Suspect]
     Active Substance: ESOMEPRAZOLE MAGNESIUM
     Indication: HIATUS HERNIA
     Route: 048
     Dates: start: 2010, end: 2010
  7. CLONAZEPAM. [Concomitant]
     Active Substance: CLONAZEPAM
     Indication: SLEEP DISORDER
     Route: 048
     Dates: start: 1991
  8. CLONAZEPAM. [Concomitant]
     Active Substance: CLONAZEPAM
     Indication: IMMUNE SYSTEM DISORDER
     Route: 048
     Dates: start: 1991
  9. DULOXETINE [Concomitant]
     Active Substance: DULOXETINE
     Indication: INSOMNIA
     Route: 048
  10. SUPPLEMENTS [Concomitant]
     Active Substance: UNSPECIFIED INGREDIENT
  11. ATENOLOL. [Suspect]
     Active Substance: ATENOLOL
     Indication: PALPITATIONS
     Route: 048
     Dates: start: 1996
  12. PRILOSEC [Suspect]
     Active Substance: OMEPRAZOLE MAGNESIUM
     Indication: GASTROOESOPHAGEAL REFLUX DISEASE
     Route: 048
  13. PRILOSEC OTC [Suspect]
     Active Substance: OMEPRAZOLE MAGNESIUM
     Indication: GASTROOESOPHAGEAL REFLUX DISEASE
     Route: 048
     Dates: start: 2013
  14. AMLODIPINE BESYLATE. [Concomitant]
     Active Substance: AMLODIPINE BESYLATE
     Indication: HYPERTENSION
     Route: 048
     Dates: start: 1993

REACTIONS (27)
  - Pyrexia [Recovered/Resolved]
  - Haematemesis [Unknown]
  - Erosive oesophagitis [Unknown]
  - Gastrooesophageal sphincter insufficiency [Unknown]
  - Vomiting [Unknown]
  - Chest pain [Unknown]
  - Anaemia [Unknown]
  - Malabsorption [Not Recovered/Not Resolved]
  - Drug ineffective [Unknown]
  - Sepsis [Recovered/Resolved]
  - Gastrooesophageal reflux disease [Unknown]
  - Cough [Unknown]
  - Chills [Unknown]
  - Tremor [Unknown]
  - Off label use [Not Recovered/Not Resolved]
  - Diarrhoea [Unknown]
  - Haemoptysis [Unknown]
  - Dysphonia [Unknown]
  - Laryngitis [Unknown]
  - Helicobacter infection [Recovered/Resolved]
  - Arthralgia [Recovered/Resolved]
  - Vena cava thrombosis [Unknown]
  - Stress [Unknown]
  - Intentional product misuse [Unknown]
  - Hiatus hernia [Unknown]
  - Sleep disorder due to general medical condition, insomnia type [Not Recovered/Not Resolved]
  - Headache [Recovered/Resolved]

NARRATIVE: CASE EVENT DATE: 1998
